FAERS Safety Report 12122305 (Version 28)
Quarter: 2021Q2

REPORT INFORMATION
  Report Type: Report from Study
  Country: CA (occurrence: CA)
  Receive Date: 20160226
  Receipt Date: 20210629
  Transmission Date: 20210716
  Serious: Yes (Hospitalization, Other)
  Sender: FDA-Public Use
  Company Number: PHHY2015CA172640

PATIENT
  Age: 61 Year
  Sex: Female

DRUGS (10)
  1. INDAPAMIDE. [Concomitant]
     Active Substance: INDAPAMIDE
     Indication: HYPERTENSION
     Dosage: 1.25 MG, QD
     Route: 065
  2. SANDOSTATIN [Suspect]
     Active Substance: OCTREOTIDE ACETATE
  3. SANDOSTATIN LAR DEPOT [Suspect]
     Active Substance: OCTREOTIDE ACETATE
     Dosage: 60 MG, QMO
     Route: 030
     Dates: start: 20210618
  4. SANDOSTATIN LAR DEPOT [Suspect]
     Active Substance: OCTREOTIDE ACETATE
  5. SANDOSTATIN LAR DEPOT [Suspect]
     Active Substance: OCTREOTIDE ACETATE
     Indication: CARCINOID TUMOUR
     Dosage: 30 MG, QMO (EVERY 4 WEEKS)
     Route: 030
     Dates: start: 20151202
  6. COVERSYL [Concomitant]
     Active Substance: PERINDOPRIL
     Indication: HYPERTENSION
     Dosage: 4 MG, UNK
     Route: 048
  7. COVERSYL [Concomitant]
     Active Substance: PERINDOPRIL
     Dosage: 8 MG, UNK
     Route: 048
     Dates: start: 20160204
  8. SANDOSTATIN [Suspect]
     Active Substance: OCTREOTIDE ACETATE
     Indication: CARCINOID TUMOUR
     Dosage: UNK(ONE/SNGLE(TEST DOSE))
     Route: 058
     Dates: start: 20151120, end: 20151120
  9. SANDOSTATIN [Suspect]
     Active Substance: OCTREOTIDE ACETATE
  10. COVERSYL [Concomitant]
     Active Substance: PERINDOPRIL
     Dosage: UNK
     Route: 048

REACTIONS (50)
  - Vomiting [Unknown]
  - Metastases to liver [Unknown]
  - Macular degeneration [Unknown]
  - Malignant neoplasm progression [Unknown]
  - Illness [Unknown]
  - Irritability [Unknown]
  - Flank pain [Unknown]
  - Flatulence [Not Recovered/Not Resolved]
  - Bacteraemia [Unknown]
  - Escherichia bacteraemia [Unknown]
  - Abdominal rigidity [Unknown]
  - Night sweats [Not Recovered/Not Resolved]
  - Nail disorder [Unknown]
  - Dry skin [Unknown]
  - Nausea [Not Recovered/Not Resolved]
  - Abdominal distension [Not Recovered/Not Resolved]
  - Pyrexia [Unknown]
  - Blood pressure increased [Unknown]
  - Mood swings [Unknown]
  - Abdominal hernia [Unknown]
  - Decreased appetite [Recovering/Resolving]
  - Joint swelling [Unknown]
  - Constipation [Unknown]
  - Intestinal obstruction [Unknown]
  - Hyperhidrosis [Not Recovered/Not Resolved]
  - Irritable bowel syndrome [Recovering/Resolving]
  - Arthralgia [Unknown]
  - Chills [Unknown]
  - Urosepsis [Unknown]
  - Neoplasm recurrence [Unknown]
  - Aggression [Unknown]
  - Taste disorder [Unknown]
  - Onychoclasis [Unknown]
  - Fatigue [Unknown]
  - Ear pain [Unknown]
  - Alopecia [Unknown]
  - Abdominal pain [Unknown]
  - Incorrect dose administered [Unknown]
  - Hepatic mass [Unknown]
  - Eating disorder [Unknown]
  - Weight decreased [Recovering/Resolving]
  - Trichorrhexis [Unknown]
  - Back pain [Unknown]
  - Urinary tract infection [Unknown]
  - Diarrhoea [Not Recovered/Not Resolved]
  - Carcinoid tumour [Unknown]
  - Dizziness [Unknown]
  - Infection [Recovered/Resolved]
  - Procedural pain [Unknown]
  - Asthenia [Recovering/Resolving]

NARRATIVE: CASE EVENT DATE: 20151219
